FAERS Safety Report 4330531-4 (Version None)
Quarter: 2004Q1

REPORT INFORMATION
  Report Type: 
  Country: None (occurrence: None)
  Receive Date: 20040329
  Receipt Date: 20040312
  Transmission Date: 20041129
  Serious: Yes (Other)
  Sender: FDA-Public Use
  Company Number: 2004017716

PATIENT
  Age: 43 Year
  Sex: Female
  Weight: 72.5755 kg

DRUGS (3)
  1. RELPAX [Suspect]
     Indication: MIGRAINE
     Dosage: (PRN), ORAL
     Route: 048
     Dates: start: 20040311
  2. VENLAFAXINE HYDROCHLORIDE (VENLAFXINE HYDROCHLORIDE) [Concomitant]
  3. LAMOTRIGINE [Concomitant]

REACTIONS (2)
  - MEDICATION ERROR [None]
  - SEROTONIN SYNDROME [None]
